FAERS Safety Report 10040735 (Version 3)
Quarter: 2014Q2

REPORT INFORMATION
  Report Type: Spontaneous
  Country: AU (occurrence: AU)
  Receive Date: 20140327
  Receipt Date: 20140415
  Transmission Date: 20141212
  Serious: Yes (Other)
  Sender: FDA-Public Use
  Company Number: AU-ROCHE-1369394

PATIENT
  Sex: Female

DRUGS (2)
  1. LUCENTIS [Suspect]
     Indication: PRODUCT USED FOR UNKNOWN INDICATION
     Route: 050
  2. EYLEA [Concomitant]

REACTIONS (3)
  - Detachment of retinal pigment epithelium [Unknown]
  - Visual acuity reduced [Recovering/Resolving]
  - Therapeutic response decreased [Unknown]
